FAERS Safety Report 10092886 (Version 1)
Quarter: 2014Q2

REPORT INFORMATION
  Report Type: Spontaneous
  Country: US (occurrence: US)
  Receive Date: 20140421
  Receipt Date: 20140421
  Transmission Date: 20141212
  Serious: No
  Sender: FDA-Public Use
  Company Number: US-SA-2013SA095566

PATIENT
  Age: 37 Year
  Sex: Male
  Weight: 111 kg

DRUGS (10)
  1. ALLEGRA [Suspect]
     Indication: URTICARIA
     Dosage: TAKEN FROM-SIX MONTHS AGO.
     Route: 048
     Dates: start: 20130917, end: 20130917
  2. SINGULAIR [Concomitant]
     Indication: URTICARIA
     Route: 065
     Dates: start: 20130823, end: 20131028
  3. SINGULAIR [Concomitant]
     Indication: ASTHMA
     Route: 065
     Dates: start: 20130823, end: 20131028
  4. ZYRTEC [Concomitant]
     Indication: HYPERSENSITIVITY
     Route: 065
  5. ZYRTEC [Concomitant]
     Indication: URTICARIA
     Route: 065
  6. ALBUTEROL [Concomitant]
     Indication: DYSPNOEA
     Dosage: DOSE: 90 MCG 2 PUFFS PER PEN
     Route: 065
     Dates: start: 20130602
  7. PREDNISONE [Concomitant]
     Indication: URTICARIA
     Dates: start: 20130602
  8. PREDNISONE [Concomitant]
     Indication: URTICARIA
     Dates: start: 20130823
  9. PREDNISONE [Concomitant]
     Indication: URTICARIA
     Dates: start: 20130924
  10. ZOFRAN [Concomitant]
     Indication: NAUSEA
     Route: 065
     Dates: start: 20130826, end: 20130910

REACTIONS (8)
  - Balance disorder [Not Recovered/Not Resolved]
  - Vision blurred [Not Recovered/Not Resolved]
  - Memory impairment [Unknown]
  - Depression [Unknown]
  - Fatigue [Unknown]
  - Nervousness [Unknown]
  - Dizziness [Not Recovered/Not Resolved]
  - Extra dose administered [Unknown]
